FAERS Safety Report 16873452 (Version 2)
Quarter: 2019Q4

REPORT INFORMATION
  Report Type: Spontaneous
  Country: US (occurrence: US)
  Receive Date: 20191001
  Receipt Date: 20191017
  Transmission Date: 20200122
  Serious: Yes (Other)
  Sender: FDA-Public Use
  Company Number: US-PFIZER INC-2019424145

PATIENT
  Age: 55 Year
  Sex: Female
  Weight: 90.34 kg

DRUGS (5)
  1. NORCO [Concomitant]
     Active Substance: ACETAMINOPHEN\HYDROCODONE BITARTRATE
     Dosage: UNK
  2. GLIPIZIDE. [Concomitant]
     Active Substance: GLIPIZIDE
     Indication: DIABETES MELLITUS
     Dosage: 40 MG, DAILY (1 TABLET BEFORE BREAKFAST, 2 TABLETS BEFORE LUNCH, 1 TABLET BEFORE DINNER)
     Route: 048
     Dates: start: 20190713
  3. LYRICA [Suspect]
     Active Substance: PREGABALIN
     Dosage: 75 MG, DAILY
     Route: 048
  4. LYRICA [Suspect]
     Active Substance: PREGABALIN
     Indication: PAIN
     Dosage: 75 MG, AS NEEDED (1 TAB PO Q8H (EVERY EIGHT HOURS) PRN)
     Route: 048
  5. LYRICA [Suspect]
     Active Substance: PREGABALIN
     Dosage: 75 MG, 2X/DAY
     Route: 048
     Dates: start: 20190725

REACTIONS (10)
  - Arthritis [Unknown]
  - Intentional product use issue [Unknown]
  - Spinal osteoarthritis [Unknown]
  - Peripheral swelling [Not Recovered/Not Resolved]
  - Drug dependence [Unknown]
  - Vaginal cyst [Not Recovered/Not Resolved]
  - Meniscus injury [Unknown]
  - Drug ineffective [Not Recovered/Not Resolved]
  - Swelling [Unknown]
  - Intervertebral disc space narrowing [Unknown]
